FAERS Safety Report 16500644 (Version 5)
Quarter: 2020Q2

REPORT INFORMATION
  Report Type: Spontaneous
  Country: US (occurrence: US)
  Receive Date: 20190701
  Receipt Date: 20200519
  Transmission Date: 20200713
  Serious: Yes (Hospitalization, Other)
  Sender: FDA-Public Use
  Company Number: US-PFIZER INC-2019279901

PATIENT
  Age: 70 Year
  Sex: Female
  Weight: 54 kg

DRUGS (7)
  1. CALCIUM 500+D [Concomitant]
     Active Substance: CALCIUM\VITAMIN D
     Indication: OSTEOPOROSIS
     Dosage: 1 DF, DAILY (1 TABLETS A DAY)
  2. XELJANZ XR [Suspect]
     Active Substance: TOFACITINIB CITRATE
     Indication: RHEUMATOID ARTHRITIS
     Dosage: 11 MG, 1X/DAY
     Route: 048
  3. PROLIA [Concomitant]
     Active Substance: DENOSUMAB
     Indication: OSTEOPOROSIS
     Dosage: UNK (SHOT THAT SHE GETS EVERY 6 MONTHS)
  4. PREDNISONE. [Concomitant]
     Active Substance: PREDNISONE
     Indication: ASTHMA
     Dosage: UNK (. THEY MAY INCREASE TO 40MG AND THEN TAPERS IT DOWN)
  5. PREDNISONE. [Concomitant]
     Active Substance: PREDNISONE
     Indication: RHEUMATOID ARTHRITIS
  6. TRAMADOL. [Concomitant]
     Active Substance: TRAMADOL
     Indication: PAIN MANAGEMENT
     Dosage: UNK, 4X/DAY (1 TABLET 4 TIMES A DAY BY MOUTH)
     Route: 048
  7. PREDNISONE. [Concomitant]
     Active Substance: PREDNISONE
     Indication: SYSTEMIC LUPUS ERYTHEMATOSUS
     Dosage: 5 MG, DAILY
     Route: 048

REACTIONS (8)
  - Pneumonia [Recovered/Resolved]
  - Contusion [Unknown]
  - Fall [Unknown]
  - Lower limb fracture [Recovered/Resolved]
  - Pulmonary oedema [Unknown]
  - Hand deformity [Unknown]
  - Ankle fracture [Unknown]
  - Scapula fracture [Recovered/Resolved]

NARRATIVE: CASE EVENT DATE: 201907
